FAERS Safety Report 8806052 (Version 1)
Quarter: 2012Q4

REPORT INFORMATION
  Report Type: 
  Country: US (occurrence: US)
  Receive Date: 20120925
  Receipt Date: 20120925
  Transmission Date: 20130627
  Serious: Yes (Other)
  Sender: FDA-Public Use
  Company Number: US-PFIZER INC-2010063063

PATIENT
  Age: 52 Year
  Sex: Male
  Weight: 61.24 kg

DRUGS (1)
  1. MOTRIN IB [Suspect]
     Dosage: UNK
     Route: 048
     Dates: end: 200901

REACTIONS (2)
  - Gastrointestinal haemorrhage [Recovered/Resolved]
  - Insomnia [Unknown]
